FAERS Safety Report 25749374 (Version 2)
Quarter: 2025Q3

REPORT INFORMATION
  Report Type: Spontaneous
  Country: US (occurrence: US)
  Receive Date: 20250902
  Receipt Date: 20250916
  Transmission Date: 20251021
  Serious: No
  Sender: KARYOPHARM THERAPEUTICS
  Company Number: US-KARYOPHARM-2025KPT100679

PATIENT

DRUGS (16)
  1. SELINEXOR [Suspect]
     Active Substance: SELINEXOR
     Indication: Plasma cell myeloma
     Route: 048
     Dates: start: 20250816
  2. VENCLEXTA [Concomitant]
     Active Substance: VENETOCLAX
  3. SERTRALINE [Concomitant]
     Active Substance: SERTRALINE HYDROCHLORIDE
  4. TRAMADOL [Concomitant]
     Active Substance: TRAMADOL
  5. ACETAMINOPHEN [Concomitant]
     Active Substance: ACETAMINOPHEN
  6. ACYCLOVIR [Concomitant]
     Active Substance: ACYCLOVIR
  7. AMOXICILLIN\CLAVULANATE POTASSIUM [Concomitant]
     Active Substance: AMOXICILLIN\CLAVULANATE POTASSIUM
  8. LOSARTAN [Concomitant]
     Active Substance: LOSARTAN
  9. OLANZAPINE [Concomitant]
     Active Substance: OLANZAPINE
  10. ONDANSETRON [Concomitant]
     Active Substance: ONDANSETRON
  11. PROCHLORPERAZINE [Concomitant]
     Active Substance: PROCHLORPERAZINE
  12. ZOMETA [Concomitant]
     Active Substance: ZOLEDRONIC ACID
  13. ZOFRAN [Concomitant]
     Active Substance: ONDANSETRON HYDROCHLORIDE
  14. ZYPREXA [Concomitant]
     Active Substance: OLANZAPINE
  15. DEXAMETHASONE [Concomitant]
     Active Substance: DEXAMETHASONE
  16. AUGMENTIN [Concomitant]
     Active Substance: AMOXICILLIN\CLAVULANATE POTASSIUM

REACTIONS (2)
  - Abdominal discomfort [Not Recovered/Not Resolved]
  - Product dose omission issue [Unknown]

NARRATIVE: CASE EVENT DATE: 20250101
